FAERS Safety Report 6726308-2 (Version None)
Quarter: 2010Q2

REPORT INFORMATION
  Report Type: 
  Country: None (occurrence: None)
  Receive Date: 20100514
  Receipt Date: 20100507
  Transmission Date: 20101027
  Serious: Yes (Hospitalization)
  Sender: FDA-Public Use
  Company Number: A0785440A

PATIENT
  Age: 52 Year
  Sex: Male

DRUGS (1)
  1. AVANDIA [Suspect]
     Route: 065
     Dates: start: 20000101, end: 20070601

REACTIONS (4)
  - DISABILITY [None]
  - DYSPNOEA [None]
  - MOBILITY DECREASED [None]
  - MYOCARDIAL INFARCTION [None]
